FAERS Safety Report 5521485-3 (Version None)
Quarter: 2007Q4

REPORT INFORMATION
  Report Type: 
  Country: None (occurrence: None)
  Receive Date: 20071119
  Receipt Date: 20071107
  Transmission Date: 20080405
  Serious: Yes (Other)
  Sender: FDA-Public Use
  Company Number: FR-PFIZER INC-2007094693

PATIENT
  Age: 51 Year
  Sex: Male

DRUGS (1)
  1. LYRICA [Suspect]
     Indication: CANCER PAIN
     Dosage: DAILY DOSE:450MG-FREQ:DAILY

REACTIONS (3)
  - APHASIA [None]
  - DIPLOPIA [None]
  - MOTOR DYSFUNCTION [None]
